FAERS Safety Report 6471315-0 (Version None)
Quarter: 2009Q4

REPORT INFORMATION
  Report Type: 
  Country: None (occurrence: None)
  Receive Date: 20091203
  Receipt Date: 20080123
  Transmission Date: 20100525
  Serious: Yes (Hospitalization)
  Sender: FDA-Public Use
  Company Number: TR-ELI_LILLY_AND_COMPANY-TR200801006216

PATIENT
  Age: 49 Year
  Sex: Male
  Weight: 80 kg

DRUGS (3)
  1. HUMALOG MIX 75/25 [Suspect]
     Indication: TYPE 2 DIABETES MELLITUS
     Dosage: 9 U, EACH MORNING
     Route: 058
     Dates: start: 20071218
  2. HUMALOG MIX 75/25 [Suspect]
     Dosage: 9 IU, EACH EVENING
     Route: 058
     Dates: start: 20071218
  3. CHOLESTEROL- AND TRIGLYCERIDE REDUCERS [Concomitant]
     Indication: BLOOD CHOLESTEROL
     Dosage: UNK, DAILY (1/D)

REACTIONS (2)
  - BLOOD GLUCOSE INCREASED [None]
  - DRUG INTOLERANCE [None]
